FAERS Safety Report 10301533 (Version 1)
Quarter: 2014Q3

REPORT INFORMATION
  Report Type: Spontaneous
  Country: KR (occurrence: KR)
  Receive Date: 20140714
  Receipt Date: 20140714
  Transmission Date: 20150326
  Serious: Yes (Hospitalization)
  Sender: FDA-Public Use
  Company Number: KR-PFIZER INC-2014190355

PATIENT
  Age: 26 Year
  Sex: Female

DRUGS (4)
  1. DUONASE /00105901/ [Concomitant]
     Dosage: UNK
     Route: 048
     Dates: start: 20140704
  2. TYLENOL [Concomitant]
     Active Substance: ACETAMINOPHEN
     Dosage: UNK
     Route: 048
     Dates: start: 20140704
  3. ZITHROMAX [Suspect]
     Active Substance: AZITHROMYCIN DIHYDRATE
     Indication: PHARYNGITIS
     Dosage: UNK
     Route: 048
     Dates: start: 20140704, end: 2014
  4. BAMEDIN [Concomitant]
     Dosage: UNK
     Route: 048
     Dates: start: 20140704

REACTIONS (2)
  - Abdominal pain [Unknown]
  - Metrorrhagia [Unknown]

NARRATIVE: CASE EVENT DATE: 20140704
